FAERS Safety Report 12646207 (Version 1)
Quarter: 2016Q3

REPORT INFORMATION
  Report Type: Spontaneous
  Country: US (occurrence: US)
  Receive Date: 20160811
  Receipt Date: 20160811
  Transmission Date: 20161109
  Serious: Yes (Hospitalization)
  Sender: FDA-Public Use
  Company Number: US-ASTRAZENECA-2016SE85398

PATIENT
  Age: 25191 Day
  Sex: Female

DRUGS (7)
  1. METFORMIN [Concomitant]
     Active Substance: METFORMIN HYDROCHLORIDE
     Dates: start: 201606
  2. BRILINTA [Suspect]
     Active Substance: TICAGRELOR
     Indication: MYOCARDIAL INFARCTION
     Route: 048
     Dates: start: 20160627
  3. PANTOPRAZOLE [Concomitant]
     Active Substance: PANTOPRAZOLE SODIUM
     Dates: start: 201606
  4. ATORVASTATIN [Concomitant]
     Active Substance: ATORVASTATIN
     Dates: start: 201606
  5. ASPIRIN. [Concomitant]
     Active Substance: ASPIRIN
     Dates: start: 201606
  6. CARVEDILOL. [Concomitant]
     Active Substance: CARVEDILOL
     Dates: start: 201606
  7. LOSARTAN. [Concomitant]
     Active Substance: LOSARTAN
     Dates: start: 201606

REACTIONS (7)
  - Hypoaesthesia [Unknown]
  - Peripheral swelling [Unknown]
  - Coronary artery disease [Unknown]
  - Pruritus [Unknown]
  - Palmar erythema [Unknown]
  - Skin exfoliation [Unknown]
  - Myalgia [Unknown]

NARRATIVE: CASE EVENT DATE: 20160713
